FAERS Safety Report 10565014 (Version 1)
Quarter: 2014Q4

REPORT INFORMATION
  Report Type: Spontaneous
  Country: ES (occurrence: None)
  Receive Date: 20141103
  Receipt Date: 20141103
  Transmission Date: 20150529
  Serious: Yes (Other)
  Sender: FDA-Public Use
  Company Number: 2014ES009249

PATIENT
  Sex: Male

DRUGS (2)
  1. ELIGARD [Suspect]
     Active Substance: LEUPROLIDE ACETATE
     Indication: PRODUCT USED FOR UNKNOWN INDICATION
     Dosage: 45 MG, CYCLIC (BIANNUALLY), SUBCUTANEOUS
     Route: 058
  2. DECAPEPTYL [Suspect]
     Active Substance: TRIPTORELIN ACETATE

REACTIONS (1)
  - Reaction to drug excipients [None]
